FAERS Safety Report 7619291-9 (Version None)
Quarter: 2011Q3

REPORT INFORMATION
  Report Type: 
  Country: None (occurrence: None)
  Receive Date: 20110718
  Receipt Date: 20110713
  Transmission Date: 20111222
  Serious: No
  Sender: FDA-Public Use
  Company Number: US-B.I. PHARMACEUTICALS,INC./RIDGEFIELD-2011-BP-09542BP

PATIENT
  Sex: Male
  Weight: 103.42 kg

DRUGS (10)
  1. ADVAIR DISKUS 100/50 [Concomitant]
     Indication: CHRONIC OBSTRUCTIVE PULMONARY DISEASE
     Dosage: 2 PUF
  2. PRADAXA [Suspect]
     Indication: ATRIAL FIBRILLATION
  3. ACTOS [Concomitant]
     Indication: DIABETES MELLITUS
     Dosage: 15 MG
  4. RHINOCORT [Concomitant]
  5. ZOCOR [Concomitant]
     Indication: BLOOD CHOLESTEROL INCREASED
     Dosage: 40 MG
  6. PRADAXA [Suspect]
     Indication: CEREBROVASCULAR ACCIDENT PROPHYLAXIS
     Dosage: 300 MG
     Route: 048
     Dates: start: 20110201
  7. LASIX [Concomitant]
     Dosage: 40 MG
  8. COZAAR [Concomitant]
     Indication: HYPERTENSION
     Dosage: 25 NR
  9. ASPIRIN [Concomitant]
     Dosage: 81 MG
  10. POTASSIUM CHLORIDE [Concomitant]
     Dosage: 20 MEQ

REACTIONS (4)
  - DIZZINESS [None]
  - CONSTIPATION [None]
  - DYSPNOEA [None]
  - DISTURBANCE IN ATTENTION [None]
